FAERS Safety Report 4578787-7 (Version None)
Quarter: 2005Q1

REPORT INFORMATION
  Report Type: 
  Country: None (occurrence: None)
  Receive Date: 20050211
  Receipt Date: 20050203
  Transmission Date: 20050727
  Serious: Yes (Death)
  Sender: FDA-Public Use
  Company Number: US-JNJFOC-20050201678

PATIENT
  Sex: Male

DRUGS (6)
  1. FLEXERIL [Suspect]
     Indication: NEUROPATHY PERIPHERAL
     Route: 049
  2. FLEXERIL [Suspect]
     Indication: LUMBAR RADICULOPATHY
     Route: 049
  3. DOXEPIN HCL [Concomitant]
  4. NEURONTIN [Concomitant]
  5. LORTAB [Concomitant]
  6. LORTAB [Concomitant]

REACTIONS (1)
  - DEATH [None]
